FAERS Safety Report 20223586 (Version 3)
Quarter: 2024Q4

REPORT INFORMATION
  Report Type: Spontaneous
  Country: FR (occurrence: FR)
  Receive Date: 20211223
  Receipt Date: 20241023
  Transmission Date: 20250114
  Serious: Yes (Other)
  Sender: NOVARTIS
  Company Number: FR-NOVARTISPH-NVSC2021FR292165

PATIENT
  Age: 90 Year
  Sex: Female

DRUGS (4)
  1. GLYCOPYRRONIUM\INDACATEROL [Suspect]
     Active Substance: GLYCOPYRRONIUM\INDACATEROL
     Indication: Emphysema
     Dosage: 1/3 OF 85/43 MCG CAPSULE (WEEKLY), QW
     Route: 065
     Dates: start: 200612
  2. GLYCOPYRRONIUM\INDACATEROL [Suspect]
     Active Substance: GLYCOPYRRONIUM\INDACATEROL
     Dosage: 1/3 OF 85/43 MCG CAPSULE (WEEKLY, DURING 10 DAYS), QW (STARTED AROUND 10 NOV 2021)
     Route: 065
  3. GLYCOPYRRONIUM\INDACATEROL [Suspect]
     Active Substance: GLYCOPYRRONIUM\INDACATEROL
     Indication: Emphysema
     Dosage: UNK
     Route: 065
     Dates: start: 20150115
  4. LEVOTHYROXINE [Concomitant]
     Active Substance: LEVOTHYROXINE
     Indication: Product used for unknown indication
     Dosage: UNK
     Route: 065

REACTIONS (6)
  - Suicidal ideation [Unknown]
  - Vomiting [Unknown]
  - Anxiety [Unknown]
  - Agitation [Unknown]
  - Tremor [Unknown]
  - Intentional underdose [Unknown]

NARRATIVE: CASE EVENT DATE: 20061201
